FAERS Safety Report 20861792 (Version 8)
Quarter: 2025Q1

REPORT INFORMATION
  Report Type: Spontaneous
  Country: US (occurrence: US)
  Receive Date: 20220523
  Receipt Date: 20250224
  Transmission Date: 20250409
  Serious: Yes (Hospitalization, Other)
  Sender: PFIZER
  Company Number: US-PFIZER INC-202200721565

PATIENT
  Age: 50 Year
  Sex: Female
  Weight: 82.2 kg

DRUGS (6)
  1. IBRANCE [Suspect]
     Active Substance: PALBOCICLIB
     Indication: Breast cancer female
     Dates: start: 20200720
  2. IBRANCE [Suspect]
     Active Substance: PALBOCICLIB
     Dates: start: 20210130
  3. IBRANCE [Suspect]
     Active Substance: PALBOCICLIB
  4. IBRANCE [Suspect]
     Active Substance: PALBOCICLIB
  5. IBRANCE [Suspect]
     Active Substance: PALBOCICLIB
     Route: 048
  6. FEMARA [Concomitant]
     Active Substance: LETROZOLE
     Dates: start: 20200720

REACTIONS (13)
  - COVID-19 pneumonia [Unknown]
  - Neutropenia [Unknown]
  - Anaemia [Unknown]
  - Liver function test increased [Unknown]
  - Fatigue [Unknown]
  - Arthralgia [Unknown]
  - Blood disorder [Unknown]
  - Sinusitis [Unknown]
  - Gastrooesophageal reflux disease [Unknown]
  - Breast hyperplasia [Unknown]
  - Product dose omission issue [Unknown]
  - Product prescribing issue [Unknown]
  - Off label use [Unknown]

NARRATIVE: CASE EVENT DATE: 20241031
